FAERS Safety Report 24357294 (Version 2)
Quarter: 2024Q3

REPORT INFORMATION
  Report Type: Report from Study
  Country: US (occurrence: US)
  Receive Date: 20240924
  Receipt Date: 20240928
  Transmission Date: 20241017
  Serious: Yes (Hospitalization)
  Sender: ABBVIE
  Company Number: US-ABBVIE-5931556

PATIENT
  Age: 70 Year
  Sex: Male
  Weight: 59 kg

DRUGS (2)
  1. DUOPA [Suspect]
     Active Substance: CARBIDOPA\LEVODOPA
     Indication: Parkinson^s disease
     Route: 050
     Dates: start: 2017, end: 202408
  2. DUOPA [Suspect]
     Active Substance: CARBIDOPA\LEVODOPA

REACTIONS (4)
  - Pneumonia [Recovered/Resolved]
  - Dysphagia [Not Recovered/Not Resolved]
  - Fibromyalgia [Unknown]
  - Anxiety disorder [Not Recovered/Not Resolved]

NARRATIVE: CASE EVENT DATE: 20240801
